FAERS Safety Report 4959958-4 (Version None)
Quarter: 2006Q1

REPORT INFORMATION
  Report Type: 
  Country: None (occurrence: None)
  Receive Date: 20060331
  Receipt Date: 20051123
  Transmission Date: 20060701
  Serious: Yes (Death)
  Sender: FDA-Public Use
  Company Number: US-MERCK-0511USA04010

PATIENT
  Age: 68 Year
  Sex: Male
  Weight: 91 kg

DRUGS (2)
  1. VIOXX [Suspect]
     Indication: ARTHRITIS
     Route: 048
     Dates: start: 20010101, end: 20030507
  2. DILANTIN [Concomitant]
     Indication: CONVULSION
     Route: 065
     Dates: start: 19780101, end: 20030101

REACTIONS (1)
  - MYOCARDIAL INFARCTION [None]
